FAERS Safety Report 10588161 (Version 2)
Quarter: 2015Q1

REPORT INFORMATION
  Report Type: Spontaneous
  Country: US (occurrence: US)
  Receive Date: 20141117
  Receipt Date: 20150130
  Transmission Date: 20150720
  Serious: No
  Sender: FDA-Public Use
  Company Number: US-TEVA-523160USA

PATIENT
  Sex: Male

DRUGS (1)
  1. PARAGARD T 380A [Suspect]
     Active Substance: COPPER
     Route: 064
     Dates: start: 20130123, end: 20130517

REACTIONS (2)
  - Foetal exposure during pregnancy [Recovered/Resolved]
  - Macrosomia [Recovered/Resolved]

NARRATIVE: CASE EVENT DATE: 201305
